FAERS Safety Report 6620249-7 (Version None)
Quarter: 2010Q1

REPORT INFORMATION
  Report Type: 
  Country: None (occurrence: None)
  Receive Date: 20100309
  Receipt Date: 20080107
  Transmission Date: 20100710
  Serious: Yes (Life-Threatening, Hospitalization)
  Sender: FDA-Public Use
  Company Number: US-WYE-H02099508

PATIENT
  Age: 60 Year
  Sex: Male

DRUGS (1)
  1. NEUMEGA [Suspect]
     Indication: NON-SMALL CELL LUNG CANCER
     Dosage: 50 MG/KG FOR 5 DOSES
     Route: 058

REACTIONS (1)
  - ARRHYTHMIA [None]
